FAERS Safety Report 4912802-3 (Version None)
Quarter: 2006Q1

REPORT INFORMATION
  Report Type: 
  Country: None (occurrence: None)
  Receive Date: 20060215
  Receipt Date: 20060209
  Transmission Date: 20060701
  Serious: Yes (Hospitalization)
  Sender: FDA-Public Use
  Company Number: FR-ROCHE-435907

PATIENT
  Age: 72 Year
  Sex: Female

DRUGS (5)
  1. CLONAZEPAM [Suspect]
     Indication: NEURALGIA
     Route: 048
  2. CLONAZEPAM [Suspect]
     Dosage: THREE DAYS PRIOR TO HOSPITALISATION. REPORTED AS '25 DROPS THIRD A DAY'
     Route: 048
  3. LAROXYL [Concomitant]
     Indication: DRUG USE FOR UNKNOWN INDICATION
     Route: 048
  4. NEURONTIN [Concomitant]
     Indication: DRUG USE FOR UNKNOWN INDICATION
     Route: 048
  5. DURAGESIC-100 [Concomitant]
     Indication: DRUG USE FOR UNKNOWN INDICATION
     Route: 065

REACTIONS (7)
  - BRADYPNOEA [None]
  - CONFUSIONAL STATE [None]
  - HYPOTENSION [None]
  - HYPOTONIA [None]
  - MIOSIS [None]
  - OVERDOSE [None]
  - SOMNOLENCE [None]
